FAERS Safety Report 16879271 (Version 1)
Quarter: 2019Q4

REPORT INFORMATION
  Report Type: Report from Study
  Country: AE (occurrence: AE)
  Receive Date: 20191003
  Receipt Date: 20191003
  Transmission Date: 20200122
  Serious: Yes (Death, Hospitalization)
  Sender: FDA-Public Use
  Company Number: PHHY2019AE012845

PATIENT
  Age: 47 Year
  Sex: Female

DRUGS (1)
  1. AFINITOR [Suspect]
     Active Substance: EVEROLIMUS
     Indication: BREAST CANCER METASTATIC
     Dosage: 10 MG, QD
     Route: 048
     Dates: start: 20181217

REACTIONS (5)
  - Death [Fatal]
  - Osteomyelitis [Recovered/Resolved]
  - Pain in jaw [Recovering/Resolving]
  - Skin ulcer [Not Recovered/Not Resolved]
  - Gingival ulceration [Recovering/Resolving]

NARRATIVE: CASE EVENT DATE: 201901
